FAERS Safety Report 7187844-0 (Version None)
Quarter: 2010Q4

REPORT INFORMATION
  Report Type: 
  Country: None (occurrence: None)
  Receive Date: 20101222
  Receipt Date: 20101209
  Transmission Date: 20110411
  Serious: Yes (Hospitalization)
  Sender: FDA-Public Use
  Company Number: AU-MYLANLABS-2010S1022963

PATIENT
  Age: 74 Year
  Sex: Male

DRUGS (5)
  1. MIRTAZAPINE [Suspect]
     Indication: MAJOR DEPRESSION
     Route: 065
  2. MIRTAZAPINE [Suspect]
     Route: 065
  3. OLANZAPINE [Suspect]
     Indication: MAJOR DEPRESSION
     Route: 065
  4. OLANZAPINE [Suspect]
     Route: 065
  5. QUETIAPINE [Suspect]
     Indication: MAJOR DEPRESSION
     Route: 065

REACTIONS (2)
  - NEUROLEPTIC MALIGNANT SYNDROME [None]
  - PARKINSONISM [None]
